FAERS Safety Report 6814931-6 (Version None)
Quarter: 2010Q3

REPORT INFORMATION
  Report Type: 
  Country: None (occurrence: None)
  Receive Date: 20100702
  Receipt Date: 20100624
  Transmission Date: 20110219
  Serious: Yes (Congenital Anomaly)
  Sender: FDA-Public Use
  Company Number: BR-ROCHE-654228

PATIENT
  Sex: Female
  Weight: 2.9 kg

DRUGS (2)
  1. ROACUTAN [Suspect]
     Indication: ACNE
     Route: 064
     Dates: start: 20081001, end: 20090401
  2. YASMIN [Concomitant]
     Indication: CONTRACEPTION
     Dates: end: 20090401

REACTIONS (1)
  - TALIPES [None]
